FAERS Safety Report 9846579 (Version 1)
Quarter: 2014Q1

REPORT INFORMATION
  Report Type: Spontaneous
  Country: US (occurrence: US)
  Receive Date: 20140127
  Receipt Date: 20140127
  Transmission Date: 20141002
  Serious: Yes (Life-Threatening, Hospitalization, Disabling, Other)
  Sender: FDA-Public Use
  Company Number: US-GLAXOSMITHKLINE-A1057274A

PATIENT
  Age: 24 Year
  Sex: Female

DRUGS (8)
  1. VALACYCLOVIR [Suspect]
     Indication: GENITAL HERPES
     Dosage: 1G TWICE PER DAY
     Route: 048
     Dates: start: 201311
  2. CARVEDILOL [Concomitant]
  3. LOSARTAN [Concomitant]
  4. PROCRIT [Concomitant]
  5. IRON [Concomitant]
  6. HYDRALAZINE [Concomitant]
  7. PARICALCITOL [Concomitant]
  8. RENVELA [Concomitant]

REACTIONS (5)
  - Convulsion [Recovering/Resolving]
  - Confusional state [Recovering/Resolving]
  - Sedation [Recovering/Resolving]
  - Endotracheal intubation [Recovered/Resolved]
  - Seizure like phenomena [Recovering/Resolving]
